FAERS Safety Report 7291547-1 (Version None)
Quarter: 2011Q1

REPORT INFORMATION
  Report Type: 
  Country: None (occurrence: None)
  Receive Date: 20110214
  Receipt Date: 20110131
  Transmission Date: 20110831
  Serious: Yes (Other)
  Sender: FDA-Public Use
  Company Number: CHPA2010DE14872

PATIENT
  Sex: Female
  Weight: 80 kg

DRUGS (6)
  1. ACC AKUT [Concomitant]
     Dosage: 600 1X1 FOR 7 DAYS
  2. AMLODIPIN ^ORIFARM^ [Concomitant]
  3. SIMVASTATIN [Concomitant]
  4. VOLTAREN [Suspect]
     Indication: MUSCULOSKELETAL PAIN
     Dosage: 3X TOPICAL APPLICATIONS
     Route: 061
     Dates: start: 20100916, end: 20100917
  5. RAMIPRIL [Concomitant]
  6. BISOPROLOL [Concomitant]

REACTIONS (2)
  - RASH [None]
  - PRURITUS [None]
